FAERS Safety Report 13931037 (Version 1)
Quarter: 2017Q3

REPORT INFORMATION
  Report Type: Spontaneous
  Country: IE (occurrence: IE)
  Receive Date: 20170902
  Receipt Date: 20170902
  Transmission Date: 20171127
  Serious: Yes (Hospitalization, Other)
  Sender: FDA-Public Use
  Company Number: IE-MACLEODS PHARMACEUTICALS US LTD-MAC2017005805

PATIENT

DRUGS (1)
  1. QUETIAPINE. [Suspect]
     Active Substance: QUETIAPINE
     Indication: PARKINSONISM
     Dosage: UNK
     Route: 065

REACTIONS (6)
  - Sexual dysfunction [Unknown]
  - Focal dyscognitive seizures [Unknown]
  - Drug effect decreased [Unknown]
  - Aggression [Recovering/Resolving]
  - Catatonia [Recovering/Resolving]
  - Hallucination [Recovered/Resolved]
